FAERS Safety Report 4443624-8 (Version None)
Quarter: 2004Q3

REPORT INFORMATION
  Report Type: 
  Country: None (occurrence: None)
  Receive Date: 20040908
  Receipt Date: 19980326
  Transmission Date: 20050211
  Serious: Yes (Hospitalization, Other)
  Sender: FDA-Public Use
  Company Number: JP-GLAXOSMITHKLINE-A0279831A

PATIENT
  Age: 64 Year
  Sex: Male

DRUGS (6)
  1. CARVEDILOL [Suspect]
     Route: 048
     Dates: start: 19970804, end: 19980302
  2. VOGLIBOSE [Concomitant]
     Dates: start: 19970310
  3. WARFARIN SODIUM [Concomitant]
     Dates: start: 19970310
  4. RENITEC (ENALAPRIL) [Concomitant]
     Dates: start: 19970310
  5. ISOSORBIDE [Concomitant]
     Dates: start: 19970310
  6. ASPIRIN [Concomitant]
     Dates: start: 19970310

REACTIONS (2)
  - ILEUS [None]
  - NEOPLASM [None]
